FAERS Safety Report 6958242-7 (Version None)
Quarter: 2010Q3

REPORT INFORMATION
  Report Type: 
  Country: None (occurrence: None)
  Receive Date: 20100827
  Receipt Date: 20100827
  Transmission Date: 20110219
  Serious: Yes (Other)
  Sender: FDA-Public Use
  Company Number: None

PATIENT
  Age: 52 Year
  Sex: Female
  Weight: 72.5755 kg

DRUGS (2)
  1. BENZTROPINE MESYLATE [Suspect]
     Indication: PROPHYLAXIS
     Dosage: 1TAB. 1XDAY OFF + ON SEVERAL YRS.
  2. BENZTROPINE MESYLATE [Suspect]
     Indication: TREMOR
     Dosage: 1TAB. 1XDAY OFF + ON SEVERAL YRS.

REACTIONS (3)
  - DYSKINESIA [None]
  - HEAD TITUBATION [None]
  - TREMOR [None]
